FAERS Safety Report 12484798 (Version 1)
Quarter: 2016Q2

REPORT INFORMATION
  Report Type: Report from Study
  Country: IL (occurrence: IL)
  Receive Date: 20160621
  Receipt Date: 20160621
  Transmission Date: 20160815
  Serious: Yes (Hospitalization)
  Sender: FDA-Public Use
  Company Number: IL-IPSEN BIOPHARMACEUTICALS, INC.-2016-05111

PATIENT
  Sex: Female

DRUGS (3)
  1. ELTROXIN [Suspect]
     Active Substance: LEVOTHYROXINE
     Indication: THYROID DISORDER
     Dosage: NOT REPORTED
     Route: 065
  2. SOMATULINE AUTOGEL [Suspect]
     Active Substance: LANREOTIDE ACETATE
     Indication: PRODUCT USED FOR UNKNOWN INDICATION
     Dosage: 120MG
     Route: 065
     Dates: start: 201502
  3. ELTROXIN [Suspect]
     Active Substance: LEVOTHYROXINE
     Dosage: NOT REPORTED
     Route: 065

REACTIONS (4)
  - Thyroid disorder [Unknown]
  - Dysstasia [Unknown]
  - General physical health deterioration [Unknown]
  - Vomiting [Unknown]

NARRATIVE: CASE EVENT DATE: 20160606
